FAERS Safety Report 5089781-4 (Version None)
Quarter: 2006Q3

REPORT INFORMATION
  Report Type: 
  Country: None (occurrence: None)
  Receive Date: 20060731
  Receipt Date: 20060209
  Transmission Date: 20061208
  Serious: Yes (Hospitalization, Other)
  Sender: FDA-Public Use
  Company Number: US200601001643

PATIENT
  Age: 68 Year
  Sex: Female
  Weight: 69.8 kg

DRUGS (5)
  1. FORTEO [Suspect]
     Indication: OSTEOPOROSIS
     Dates: start: 20051114, end: 20051226
  2. FORTEO [Concomitant]
  3. CALCIUM CARBONATE (CALCIUM CARBONATE) [Concomitant]
  4. CENTRUM SILVER (ASCORBIC ACID, CALCIUM, MINERALS NOS, RETINOL, TOCOPHE [Concomitant]
  5. ROCALTROL [Concomitant]

REACTIONS (5)
  - ANKLE FRACTURE [None]
  - ASTHENIA [None]
  - HYPERCALCAEMIA [None]
  - NAUSEA [None]
  - VOMITING [None]
